FAERS Safety Report 9712791 (Version 1)
Quarter: 2013Q4

REPORT INFORMATION
  Report Type: Spontaneous
  Country: US (occurrence: US)
  Receive Date: 20131126
  Receipt Date: 20131126
  Transmission Date: 20140711
  Serious: No
  Sender: FDA-Public Use
  Company Number: US-BRISTOL-MYERS SQUIBB COMPANY-19236223

PATIENT
  Age: 62 Year
  Sex: Female
  Weight: 120.18 kg

DRUGS (10)
  1. BYDUREON 2MG SUSPENSION [Suspect]
     Indication: TYPE 2 DIABETES MELLITUS
     Route: 058
  2. MULTIVITAMIN [Concomitant]
  3. VITAMIN D [Concomitant]
  4. VITAMIN B12 [Concomitant]
  5. ADVICOR [Concomitant]
  6. PREDNISONE [Concomitant]
  7. LASIX [Concomitant]
  8. ADVAIR [Concomitant]
  9. LICORICE [Concomitant]
  10. PRILOSEC [Concomitant]

REACTIONS (2)
  - Injection site haemorrhage [Unknown]
  - Injection site extravasation [Unknown]
